FAERS Safety Report 8177897-5 (Version None)
Quarter: 2012Q1

REPORT INFORMATION
  Report Type: 
  Country: None (occurrence: None)
  Receive Date: 20120301
  Receipt Date: 20120222
  Transmission Date: 20120608
  Serious: Yes (Other)
  Sender: FDA-Public Use
  Company Number: PT-BAYER-2012-017201

PATIENT
  Age: 46 Year
  Sex: Male

DRUGS (3)
  1. LEXOTAN [Concomitant]
     Route: 048
  2. ASPIRIN [Suspect]
     Indication: HEADACHE
     Route: 048
     Dates: start: 20060101, end: 20060101
  3. ACETAMINOPHEN [Concomitant]
     Dosage: 1 DF, PRN

REACTIONS (5)
  - PRURITUS GENERALISED [None]
  - HEADACHE [None]
  - PRURITUS [None]
  - ANGIOEDEMA [None]
  - MALAISE [None]
